FAERS Safety Report 5515560-7 (Version None)
Quarter: 2007Q4

REPORT INFORMATION
  Report Type: 
  Country: None (occurrence: None)
  Receive Date: 20071113
  Receipt Date: 20070605
  Transmission Date: 20080405
  Serious: No
  Sender: FDA-Public Use
  Company Number: A0654283A

PATIENT
  Age: 67 Year
  Sex: Male

DRUGS (2)
  1. COREG [Suspect]
     Dosage: 6.25MG TWICE PER DAY
     Route: 048
     Dates: start: 20070604
  2. LISINOPRIL [Concomitant]

REACTIONS (2)
  - DIARRHOEA [None]
  - MALAISE [None]
